FAERS Safety Report 21781503 (Version 7)
Quarter: 2023Q2

REPORT INFORMATION
  Report Type: Report from Study
  Country: US (occurrence: US)
  Receive Date: 20221227
  Receipt Date: 20230529
  Transmission Date: 20230721
  Serious: Yes (Hospitalization, Other)
  Sender: FDA-Public Use
  Company Number: US-TAKEDA-2022TUS097686

PATIENT
  Sex: Male

DRUGS (2)
  1. MARIBAVIR [Suspect]
     Active Substance: MARIBAVIR
     Indication: Cytomegalovirus infection
     Dosage: 200 MILLIGRAM, BID
     Route: 048
     Dates: start: 20221129
  2. MARIBAVIR [Suspect]
     Active Substance: MARIBAVIR
     Indication: Cytomegalovirus chorioretinitis

REACTIONS (12)
  - Blood creatinine increased [Unknown]
  - Kidney transplant rejection [Recovered/Resolved]
  - Blindness unilateral [Unknown]
  - Vitreous floaters [Unknown]
  - Retinal disorder [Recovering/Resolving]
  - Eye infection [Unknown]
  - Eye infection viral [Unknown]
  - Abdominal discomfort [Unknown]
  - Fatigue [Unknown]
  - Dysgeusia [Unknown]
  - Diarrhoea [Unknown]
  - Nausea [Unknown]
